FAERS Safety Report 6380723-8 (Version None)
Quarter: 2009Q3

REPORT INFORMATION
  Report Type: 
  Country: None (occurrence: None)
  Receive Date: 20090929
  Receipt Date: 20090916
  Transmission Date: 20100115
  Serious: Yes (Other)
  Sender: FDA-Public Use
  Company Number: AU-PFIZER INC-2009252111

PATIENT
  Age: 17 Year

DRUGS (1)
  1. ZELDOX [Suspect]
     Indication: MOOD SWINGS
     Dosage: 20 MG, 2X/DAY
     Route: 048
     Dates: start: 20090801

REACTIONS (2)
  - FATIGUE [None]
  - SOMNOLENCE [None]
